FAERS Safety Report 14880140 (Version 1)
Quarter: 2018Q2

REPORT INFORMATION
  Report Type: Spontaneous
  Country: US (occurrence: US)
  Receive Date: 20180511
  Receipt Date: 20180511
  Transmission Date: 20180711
  Serious: Yes (Other)
  Sender: FDA-Public Use
  Company Number: US-SA-2018SA133794

PATIENT
  Sex: Male

DRUGS (6)
  1. XOPENEX [Concomitant]
     Active Substance: LEVALBUTEROL HYDROCHLORIDE
     Dosage: 1 DOSE NEBULIZER AS DIRECTED
     Route: 065
     Dates: start: 20150330
  2. LUMIZYME [Suspect]
     Active Substance: ALGLUCOSIDASE ALFA
     Indication: GLYCOGEN STORAGE DISORDER
     Route: 041
     Dates: start: 20150401
  3. PULMICORT TURBUHALER [Concomitant]
     Active Substance: BUDESONIDE
     Dosage: 1 DOSE INHALATION AS DIRECTED
     Route: 065
     Dates: start: 20150330
  4. TOBRAMYCIN. [Concomitant]
     Active Substance: TOBRAMYCIN
     Dosage: 1 DOSE INHALATION
     Route: 065
     Dates: start: 20150330
  5. IRON [Concomitant]
     Active Substance: IRON
     Dosage: 1 DOSE AS DIRECTED
     Route: 065
     Dates: start: 20150330
  6. VITAMIN C [Concomitant]
     Active Substance: ASCORBIC ACID
     Dosage: 1 DOSE AS DIRECTED
     Route: 065
     Dates: start: 20150330

REACTIONS (1)
  - Pneumonia [Recovered/Resolved]

NARRATIVE: CASE EVENT DATE: 20180410
